FAERS Safety Report 8539659-6 (Version None)
Quarter: 2012Q3

REPORT INFORMATION
  Report Type: 
  Country: None (occurrence: None)
  Receive Date: 20120726
  Receipt Date: 20110720
  Transmission Date: 20120928
  Serious: No
  Sender: FDA-Public Use
  Company Number: US-ASTRAZENECA-2008UW19816

PATIENT
  Age: 48 Year
  Sex: Female
  Weight: 133.4 kg

DRUGS (6)
  1. SEROQUEL [Suspect]
     Dosage: 100 TO 600 MG
     Route: 048
     Dates: start: 20020710
  2. SEROQUEL [Suspect]
     Indication: DEPRESSION
     Dosage: 100 TO 300 MG
     Route: 048
     Dates: start: 20020710
  3. SEROQUEL [Suspect]
     Indication: SCHIZOPHRENIA
     Dosage: 100 TO 300 MG
     Route: 048
     Dates: start: 20020710
  4. EFFEXOR [Concomitant]
     Dates: start: 20070101, end: 20080101
  5. REMERON [Concomitant]
     Route: 048
     Dates: start: 20020710
  6. SEROQUEL [Suspect]
     Dosage: 100 TO 600 MG
     Route: 048
     Dates: start: 20020710

REACTIONS (4)
  - OBESITY [None]
  - TYPE 2 DIABETES MELLITUS [None]
  - BLOOD CHOLESTEROL INCREASED [None]
  - HYPERLIPIDAEMIA [None]
